FAERS Safety Report 9411136 (Version 1)
Quarter: 2013Q3

REPORT INFORMATION
  Report Type: Report from Study
  Country: AR (occurrence: AR)
  Receive Date: 20130721
  Receipt Date: 20130721
  Transmission Date: 20140515
  Serious: Yes (Hospitalization, Other)
  Sender: FDA-Public Use
  Company Number: PHHY2013AR076955

PATIENT
  Sex: Female

DRUGS (3)
  1. EXFORGE [Suspect]
     Indication: BLOOD PRESSURE
     Dosage: 1 DF (160/5MG) DAILY
     Route: 048
     Dates: start: 201101
  2. OMEPRAZOLE [Concomitant]
     Indication: GASTRITIS
     Dosage: UNK UKN, UNK
  3. T4 [Concomitant]
     Indication: THYROID DISORDER
     Dosage: UNK UKN, UNK

REACTIONS (5)
  - Cerebrovascular accident [Unknown]
  - Dizziness [Recovered/Resolved]
  - Abasia [Recovered/Resolved]
  - Paralysis [Recovered/Resolved]
  - Memory impairment [Recovering/Resolving]
